FAERS Safety Report 15795726 (Version 3)
Quarter: 2019Q2

REPORT INFORMATION
  Report Type: Spontaneous
  Country: ES (occurrence: ES)
  Receive Date: 20190107
  Receipt Date: 20190611
  Transmission Date: 20190711
  Serious: Yes (Other)
  Sender: FDA-Public Use
  Company Number: ES-MYLANLABS-2018M1097929

PATIENT
  Age: 53 Year
  Sex: Male

DRUGS (11)
  1. GENTAMICIN. [Suspect]
     Active Substance: GENTAMICIN
     Indication: STAPHYLOCOCCAL INFECTION
     Dosage: 240 MG, UNK (240 MG/48 H (3))
     Route: 042
  2. CUBICIN [Suspect]
     Active Substance: DAPTOMYCIN
     Dosage: 10 MILLIGRAM/KILOGRAM, QD
     Route: 042
  3. CUBICIN [Suspect]
     Active Substance: DAPTOMYCIN
     Dosage: 2 GRAM, QD
     Route: 042
  4. FOSFOMYCIN [Suspect]
     Active Substance: FOSFOMYCIN
     Indication: ENDOCARDITIS STAPHYLOCOCCAL
     Dosage: 2 GRAM, QID
     Route: 042
  5. DAPTOMYCIN. [Suspect]
     Active Substance: DAPTOMYCIN
     Indication: STAPHYLOCOCCAL INFECTION
     Dosage: 4 MG/KG, DAILY
     Route: 042
  6. DAPTOMYCIN. [Suspect]
     Active Substance: DAPTOMYCIN
     Dosage: 4 MILLIGRAM/KILOGRAM, QD
     Route: 042
  7. CUBICIN [Suspect]
     Active Substance: DAPTOMYCIN
     Indication: ENDOCARDITIS STAPHYLOCOCCAL
     Dosage: 4 MILLIGRAM/KILOGRAM, QD
     Route: 042
  8. DAPTOMYCIN. [Suspect]
     Active Substance: DAPTOMYCIN
     Dosage: 8 MILLIGRAM/KILOGRAM, QD
     Route: 042
  9. GENTAMICIN. [Suspect]
     Active Substance: GENTAMICIN
     Indication: ENDOCARDITIS STAPHYLOCOCCAL
     Dosage: 240 MILLIGRAM, Q2D
     Route: 042
  10. CUBICIN [Suspect]
     Active Substance: DAPTOMYCIN
     Dosage: 8 MILLIGRAM/KILOGRAM, QD
     Route: 042
  11. FOSFOMYCIN [Suspect]
     Active Substance: FOSFOMYCIN
     Dosage: 2 GRAM, QID

REACTIONS (5)
  - Renal failure [Unknown]
  - Septic embolus [Unknown]
  - Foot amputation [Unknown]
  - Pyomyositis [Unknown]
  - Drug ineffective for unapproved indication [Recovered/Resolved]
